FAERS Safety Report 4417051-3 (Version None)
Quarter: 2004Q3

REPORT INFORMATION
  Report Type: 
  Country: None (occurrence: None)
  Receive Date: 20040802
  Receipt Date: 20040723
  Transmission Date: 20050211
  Serious: Yes (Hospitalization)
  Sender: FDA-Public Use
  Company Number: 2004224943US

PATIENT
  Age: 60 Year
  Sex: Female
  Weight: 92.6 kg

DRUGS (2)
  1. CAMPTOSAR [Suspect]
     Indication: GLIOBLASTOMA
     Dosage: 816 MG, CYCLIC, IV
     Route: 042
     Dates: start: 20040603
  2. CLINICAL TRIAL PROCEDURE (CLINICAL TRIAL PROCEDURE) [Suspect]
     Indication: GLIOBLASTOMA
     Dosage: MONDAY-FRIDAY, CYCLIC
     Dates: end: 20040715

REACTIONS (7)
  - BLOOD CALCIUM DECREASED [None]
  - BLOOD POTASSIUM DECREASED [None]
  - BLOOD UREA INCREASED [None]
  - CONVULSION [None]
  - GLIOBLASTOMA [None]
  - MALIGNANT NEOPLASM PROGRESSION [None]
  - RADIATION INJURY [None]
